FAERS Safety Report 23084666 (Version 1)
Quarter: 2023Q4

REPORT INFORMATION
  Report Type: Spontaneous
  Country: NL (occurrence: NL)
  Receive Date: 20231019
  Receipt Date: 20231019
  Transmission Date: 20240110
  Serious: Yes (Other)
  Sender: FDA-Public Use
  Company Number: None

PATIENT
  Age: 22 Year
  Sex: Female
  Weight: 73 kg

DRUGS (2)
  1. MIRENA [Suspect]
     Active Substance: LEVONORGESTREL
     Indication: Contraception
     Dosage: 20?G/DAY
     Route: 015
     Dates: start: 20141001, end: 20230804
  2. MIRENA [Suspect]
     Active Substance: LEVONORGESTREL
     Indication: Menstrual discomfort

REACTIONS (10)
  - Stress [Recovered/Resolved]
  - Syncope [Recovering/Resolving]
  - Fatigue [Recovered/Resolved]
  - Abdominal pain [Recovered/Resolved]
  - Depressed mood [Recovered/Resolved]
  - Abdominal distension [Recovered/Resolved]
  - Migraine [Recovered/Resolved]
  - Anxiety [Recovered/Resolved]
  - Panic attack [Recovered/Resolved]
  - Orgasm abnormal [Recovered/Resolved]
